FAERS Safety Report 6850696-X (Version None)
Quarter: 2010Q3

REPORT INFORMATION
  Report Type: 
  Country: None (occurrence: None)
  Receive Date: 20100716
  Receipt Date: 20071019
  Transmission Date: 20110219
  Serious: Yes (Other)
  Sender: FDA-Public Use
  Company Number: US-PFIZER INC-2007089864

PATIENT
  Sex: Female
  Weight: 93 kg

DRUGS (1)
  1. CHANTIX [Suspect]
     Indication: EX-TOBACCO USER
     Dosage: EVERY DAY
     Dates: start: 20070705, end: 20070901

REACTIONS (7)
  - ABNORMAL DREAMS [None]
  - ASTHMA [None]
  - CHEST DISCOMFORT [None]
  - IRRITABILITY [None]
  - OROPHARYNGEAL PAIN [None]
  - SINUSITIS [None]
  - WEIGHT INCREASED [None]
